FAERS Safety Report 5476896-1 (Version None)
Quarter: 2007Q4

REPORT INFORMATION
  Report Type: 
  Country: None (occurrence: None)
  Receive Date: 20071002
  Receipt Date: 20070925
  Transmission Date: 20080405
  Serious: Yes (Other)
  Sender: FDA-Public Use
  Company Number: 163-20785-07050589

PATIENT
  Age: 46 Year
  Sex: Female

DRUGS (3)
  1. THALOMID [Suspect]
     Indication: MULTIPLE MYELOMA
     Dosage: 100 MG, 1 IN 1 D, ORAL; 200 MG, 4 IN 1 D, ORAL; 50 MG, 1 IN 1 D, ORAL
     Route: 048
     Dates: start: 20070301, end: 20070801
  2. THALOMID [Suspect]
     Indication: MULTIPLE MYELOMA
     Dosage: 100 MG, 1 IN 1 D, ORAL; 200 MG, 4 IN 1 D, ORAL; 50 MG, 1 IN 1 D, ORAL
     Route: 048
     Dates: start: 20070201
  3. THALOMID [Suspect]
     Indication: MULTIPLE MYELOMA
     Dosage: 100 MG, 1 IN 1 D, ORAL; 200 MG, 4 IN 1 D, ORAL; 50 MG, 1 IN 1 D, ORAL
     Route: 048
     Dates: start: 20070801

REACTIONS (2)
  - BLOOD HUMAN CHORIONIC GONADOTROPIN INCREASED [None]
  - PREGNANCY TEST NEGATIVE [None]
